FAERS Safety Report 24958462 (Version 2)
Quarter: 2025Q1

REPORT INFORMATION
  Report Type: Spontaneous
  Country: US (occurrence: US)
  Receive Date: 20250212
  Receipt Date: 20250306
  Transmission Date: 20250408
  Serious: No
  Sender: ROCHE
  Company Number: US-ROCHE-10000200828

PATIENT
  Age: 78 Year
  Sex: Female
  Weight: 61.23 kg

DRUGS (2)
  1. ACTEMRA [Suspect]
     Active Substance: TOCILIZUMAB
     Indication: Giant cell arteritis
     Route: 058
     Dates: start: 202408
  2. ACTEMRA [Suspect]
     Active Substance: TOCILIZUMAB
     Dosage: STRENGTH: 162MG/0.9M
     Route: 065
     Dates: start: 2019

REACTIONS (10)
  - Device malfunction [Unknown]
  - Skin irritation [Unknown]
  - Malaise [Unknown]
  - Dizziness [Unknown]
  - Exposure via skin contact [Unknown]
  - Product dose omission issue [Unknown]
  - Pneumonia [Recovered/Resolved]
  - Thyroid disorder [Recovered/Resolved]
  - Blood calcium decreased [Not Recovered/Not Resolved]
  - Wrong technique in product usage process [Unknown]

NARRATIVE: CASE EVENT DATE: 20250203
